FAERS Safety Report 5849232-6 (Version None)
Quarter: 2008Q3

REPORT INFORMATION
  Report Type: 
  Country: None (occurrence: None)
  Receive Date: 20080815
  Receipt Date: 20080804
  Transmission Date: 20090109
  Serious: Yes (Death, Other)
  Sender: FDA-Public Use
  Company Number: 2008BI019999

PATIENT
  Age: 71 Year
  Sex: Male
  Weight: 102.0593 kg

DRUGS (2)
  1. TYSABRI [Suspect]
     Indication: MULTIPLE SCLEROSIS
     Dosage: IV,
     Dates: start: 20061121, end: 20071017
  2. AVONEX [Concomitant]

REACTIONS (3)
  - HALLUCINATION [None]
  - LEUKAEMIA [None]
  - NERVOUS SYSTEM DISORDER [None]
